FAERS Safety Report 16479938 (Version 1)
Quarter: 2019Q2

REPORT INFORMATION
  Report Type: Other
  Country: CN (occurrence: CN)
  Receive Date: 20190626
  Receipt Date: 20190626
  Transmission Date: 20190711
  Serious: Yes (Death, Life-Threatening, Hospitalization)
  Sender: FDA-Public Use
  Company Number: CN-NOSTRUM LABORATORIES, INC.-2069657

PATIENT
  Age: 62 Year
  Sex: Female

DRUGS (2)
  1. MORPHINE SULFATE. [Suspect]
     Active Substance: MORPHINE SULFATE
     Indication: PAIN
     Route: 037
  2. ROPIVACAINE HCL [Concomitant]
     Active Substance: ROPIVACAINE HYDROCHLORIDE
     Route: 037

REACTIONS (2)
  - Pain [Recovered/Resolved]
  - Myoclonus [Recovered/Resolved]
